FAERS Safety Report 9559644 (Version 1)
Quarter: 2013Q3

REPORT INFORMATION
  Report Type: Spontaneous
  Country: US (occurrence: None)
  Receive Date: 20130909
  Receipt Date: 20130909
  Transmission Date: 20140515
  Serious: Yes (Hospitalization)
  Sender: FDA-Public Use
  Company Number: 381614

PATIENT
  Age: 45 Year
  Sex: Female
  Weight: 59.9 kg

DRUGS (3)
  1. VICTOZA (LIRAGLUTIDE) SOLUTION FOR INJECTION, 6MG/ML [Suspect]
     Indication: TYPE 2 DIABETES MELLITUS
     Route: 058
     Dates: start: 20130620, end: 20130622
  2. LIPITOR (ATORVASTATIN CALCIUM) [Concomitant]
  3. LISINOPRIL (LISINOPRIL) [Concomitant]

REACTIONS (1)
  - Dyspepsia [None]
